FAERS Safety Report 18376749 (Version 1)
Quarter: 2020Q4

REPORT INFORMATION
  Report Type: Spontaneous
  Country: US (occurrence: US)
  Receive Date: 20201013
  Receipt Date: 20201013
  Transmission Date: 20210114
  Serious: Yes (Hospitalization, Other)
  Sender: FDA-Public Use
  Company Number: US-HIKMA PHARMACEUTICALS USA INC.-US-H14001-20-04673

PATIENT
  Age: 41 Year
  Sex: Female

DRUGS (1)
  1. DEXAMETHASONE. [Suspect]
     Active Substance: DEXAMETHASONE
     Indication: COVID-19
     Route: 048
     Dates: start: 20200826

REACTIONS (12)
  - Psychomotor hyperactivity [Not Recovered/Not Resolved]
  - Logorrhoea [Not Recovered/Not Resolved]
  - Affect lability [Not Recovered/Not Resolved]
  - Mania [Not Recovered/Not Resolved]
  - Aggression [Not Recovered/Not Resolved]
  - Insomnia [Not Recovered/Not Resolved]
  - Feeling abnormal [Not Recovered/Not Resolved]
  - Overdose [Not Recovered/Not Resolved]
  - Hallucination [Not Recovered/Not Resolved]
  - Personality change [Not Recovered/Not Resolved]
  - Dehydration [Not Recovered/Not Resolved]
  - Hostility [Not Recovered/Not Resolved]
